FAERS Safety Report 9949014 (Version 4)
Quarter: 2015Q4

REPORT INFORMATION
  Report Type: Report from Study
  Country: CA (occurrence: CA)
  Receive Date: 20140304
  Receipt Date: 20151201
  Transmission Date: 20160305
  Serious: Yes (Other)
  Sender: FDA-Public Use
  Company Number: CA-ROCHE-1355894

PATIENT
  Age: 48 Year
  Sex: Male

DRUGS (3)
  1. AVASTIN [Suspect]
     Active Substance: BEVACIZUMAB
     Indication: HEPATIC CANCER
     Route: 042
     Dates: start: 200603
  2. AVASTIN [Suspect]
     Active Substance: BEVACIZUMAB
     Dosage: ON HOLD
     Route: 042
     Dates: start: 20141001
  3. AVASTIN [Suspect]
     Active Substance: BEVACIZUMAB
     Indication: METASTASES TO LUNG
     Dosage: FIRST PIR RECEIVED
     Route: 042
     Dates: start: 20140417

REACTIONS (5)
  - Hypotension [Unknown]
  - Off label use [Unknown]
  - Weight increased [Unknown]
  - Blood cholesterol increased [Unknown]
  - Vertigo [Recovered/Resolved]

NARRATIVE: CASE EVENT DATE: 2007
